FAERS Safety Report 6088162-4 (Version None)
Quarter: 2009Q1

REPORT INFORMATION
  Report Type: 
  Country: None (occurrence: None)
  Receive Date: 20090224
  Receipt Date: 20090213
  Transmission Date: 20090719
  Serious: Yes (Hospitalization, Other)
  Sender: FDA-Public Use
  Company Number: PHHY2009JP05617

PATIENT
  Age: 74 Year
  Sex: Female

DRUGS (2)
  1. LOCHOL [Suspect]
     Indication: DYSLIPIDAEMIA
     Dosage: 30MG PER DAY
     Route: 048
  2. LOCHOL [Suspect]
     Indication: HYPERCHOLESTEROLAEMIA

REACTIONS (6)
  - ALANINE AMINOTRANSFERASE INCREASED [None]
  - ASPARTATE AMINOTRANSFERASE INCREASED [None]
  - BLOOD BILIRUBIN INCREASED [None]
  - CHOLELITHIASIS [None]
  - GAMMA-GLUTAMYLTRANSFERASE INCREASED [None]
  - HEPATIC FUNCTION ABNORMAL [None]
